FAERS Safety Report 23388651 (Version 2)
Quarter: 2024Q2

REPORT INFORMATION
  Report Type: Spontaneous
  Country: DE (occurrence: DE)
  Receive Date: 20240110
  Receipt Date: 20240429
  Transmission Date: 20240716
  Serious: Yes (Other)
  Sender: FDA-Public Use
  Company Number: DE-TEVA-VS-3140405

PATIENT
  Age: 31 Year
  Sex: Female

DRUGS (2)
  1. IBUPROFEN [Suspect]
     Active Substance: IBUPROFEN
     Indication: Musculoskeletal stiffness
     Route: 048
  2. METHOCARBAMOL [Suspect]
     Active Substance: METHOCARBAMOL
     Indication: Product used for unknown indication
     Route: 065

REACTIONS (8)
  - Dysphagia [Unknown]
  - Muscle spasms [Unknown]
  - Mobility decreased [Unknown]
  - Peripheral swelling [Unknown]
  - Erythema [Unknown]
  - Velopharyngeal incompetence [Unknown]
  - Limb discomfort [Unknown]
  - Muscular weakness [Unknown]
